FAERS Safety Report 24099293 (Version 1)
Quarter: 2024Q3

REPORT INFORMATION
  Report Type: Spontaneous
  Country: US (occurrence: US)
  Receive Date: 20240716
  Receipt Date: 20240716
  Transmission Date: 20241017
  Serious: No
  Sender: NOVO NORDISK
  Company Number: US-NOVOPROD-1172246

PATIENT
  Sex: Female

DRUGS (1)
  1. OZEMPIC [Suspect]
     Active Substance: SEMAGLUTIDE
     Indication: Product used for unknown indication
     Dosage: .25MG
     Route: 058
     Dates: start: 202312

REACTIONS (3)
  - SARS-CoV-2 test positive [Unknown]
  - Blood glucose decreased [Unknown]
  - Off label use [Unknown]
